FAERS Safety Report 23530233 (Version 1)
Quarter: 2024Q1

REPORT INFORMATION
  Report Type: Spontaneous
  Country: FR (occurrence: FR)
  Receive Date: 20240216
  Receipt Date: 20240216
  Transmission Date: 20240410
  Serious: Yes (Death, Life-Threatening)
  Sender: FDA-Public Use
  Company Number: None

PATIENT
  Age: 87 Year
  Sex: Male
  Weight: 58.2 kg

DRUGS (7)
  1. MITOMYCIN [Suspect]
     Active Substance: MITOMYCIN
     Indication: Bladder cancer
     Dates: start: 20231026, end: 20231214
  2. METHOTREXATE [Suspect]
     Active Substance: METHOTREXATE
     Indication: Rheumatoid arthritis
     Dates: end: 20231221
  3. CEFPODOXIME [Suspect]
     Active Substance: CEFPODOXIME
     Indication: Bronchitis
     Dates: start: 202309, end: 20231221
  4. PREDNISONE [Concomitant]
     Active Substance: PREDNISONE
  5. IRBESARTAN [Concomitant]
     Active Substance: IRBESARTAN
  6. TAMSULOSIN [Concomitant]
     Active Substance: TAMSULOSIN
  7. FOLIC ACID [Concomitant]
     Active Substance: FOLIC ACID

REACTIONS (3)
  - COVID-19 [Fatal]
  - Pneumocystis jirovecii pneumonia [Fatal]
  - Pancytopenia [Recovered/Resolved]

NARRATIVE: CASE EVENT DATE: 20231220
